FAERS Safety Report 19876555 (Version 6)
Quarter: 2022Q2

REPORT INFORMATION
  Report Type: Report from Study
  Country: CO (occurrence: CO)
  Receive Date: 20210923
  Receipt Date: 20220621
  Transmission Date: 20220721
  Serious: Yes (Hospitalization)
  Sender: FDA-Public Use
  Company Number: NVSC2021CO212546

PATIENT
  Sex: Male
  Weight: 82 kg

DRUGS (3)
  1. ELTROMBOPAG OLAMINE [Suspect]
     Active Substance: ELTROMBOPAG OLAMINE
     Indication: Immune thrombocytopenia
     Dosage: 50 MG, QD (STRATED FROM 7 MONTHS AGO)
     Route: 048
  2. ELTROMBOPAG OLAMINE [Suspect]
     Active Substance: ELTROMBOPAG OLAMINE
     Dosage: 25 MG
     Route: 048
  3. ELTROMBOPAG OLAMINE [Suspect]
     Active Substance: ELTROMBOPAG OLAMINE
     Dosage: UNK
     Route: 048

REACTIONS (8)
  - Abdominal hernia [Unknown]
  - Malaise [Unknown]
  - Blister [Unknown]
  - Skin burning sensation [Unknown]
  - Pain [Unknown]
  - Cough [Unknown]
  - Platelet count abnormal [Unknown]
  - Blood creatinine increased [Unknown]
